FAERS Safety Report 6296340-4 (Version None)
Quarter: 2009Q3

REPORT INFORMATION
  Report Type: 
  Country: None (occurrence: None)
  Receive Date: 20090804
  Receipt Date: 20090724
  Transmission Date: 20100115
  Serious: Yes (Other)
  Sender: FDA-Public Use
  Company Number: PHHY2009DE31034

PATIENT
  Age: 57 Year
  Sex: Male
  Weight: 88 kg

DRUGS (2)
  1. ZOMETA [Suspect]
     Indication: RENAL CELL CARCINOMA
     Dosage: 4 MG EVERY 4 WEEKS
     Route: 042
  2. SUTENT [Concomitant]
     Indication: RENAL CELL CARCINOMA
     Dosage: 50 MG DAILY
     Route: 048

REACTIONS (1)
  - OSTEONECROSIS [None]
